FAERS Safety Report 15711783 (Version 1)
Quarter: 2018Q4

REPORT INFORMATION
  Report Type: Report from Study
  Country: None (occurrence: US)
  Receive Date: 20181212
  Receipt Date: 20181212
  Transmission Date: 20190205
  Serious: Yes (Hospitalization, Other)
  Sender: FDA-Public Use
  Company Number: US-ABBVIE-18K-163-2579865-00

PATIENT
  Sex: Female

DRUGS (1)
  1. HUMIRA [Suspect]
     Active Substance: ADALIMUMAB
     Indication: PRODUCT USED FOR UNKNOWN INDICATION
     Route: 058
     Dates: end: 201802

REACTIONS (12)
  - Skin lesion [Unknown]
  - Aphasia [Unknown]
  - Rash erythematous [Unknown]
  - Coma [Unknown]
  - Balance disorder [Unknown]
  - Nervous system disorder [Unknown]
  - Cough [Unknown]
  - Encephalitis [Unknown]
  - Myocardial infarction [Unknown]
  - Behcet^s syndrome [Unknown]
  - Rheumatoid arthritis [Unknown]
  - Autoimmune disorder [Unknown]
